FAERS Safety Report 4843671-8 (Version None)
Quarter: 2005Q4

REPORT INFORMATION
  Report Type: 
  Country: None (occurrence: None)
  Receive Date: 20051202
  Receipt Date: 20051122
  Transmission Date: 20060501
  Serious: Yes (Hospitalization)
  Sender: FDA-Public Use
  Company Number: 2005CG01930

PATIENT
  Age: 84 Year
  Sex: Female

DRUGS (5)
  1. ARIMIDEX [Suspect]
     Indication: BREAST CANCER
     Route: 048
     Dates: start: 20040501, end: 20050922
  2. COAPROVEL [Suspect]
     Indication: HYPERTENSION
     Route: 048
     Dates: end: 20050907
  3. NOLVADEX [Concomitant]
     Indication: BREAST CANCER
     Route: 048
     Dates: end: 20040501
  4. DILTIAZEM HYDROCHLORIDE [Concomitant]
     Indication: HYPERTENSION
  5. ASPEGIC 325 [Concomitant]
     Indication: PAIN
     Dates: end: 20050912

REACTIONS (2)
  - COLITIS COLLAGENOUS [None]
  - METASTASES TO LIVER [None]
